FAERS Safety Report 16931435 (Version 18)
Quarter: 2022Q1

REPORT INFORMATION
  Report Type: Report from Study
  Country: GB (occurrence: GB)
  Receive Date: 20191017
  Receipt Date: 20220328
  Transmission Date: 20220423
  Serious: Yes (Hospitalization, Congenital Anomaly, Other)
  Sender: FDA-Public Use
  Company Number: GB-MERCK-1007GBR00039

PATIENT
  Age: 34 Year
  Sex: Female

DRUGS (32)
  1. LAMIVUDINE [Suspect]
     Active Substance: LAMIVUDINE
     Indication: HIV infection
     Dosage: 300 MILLIGRAM, QD
     Route: 048
     Dates: start: 20090101, end: 20100610
  2. LAMIVUDINE [Suspect]
     Active Substance: LAMIVUDINE
     Indication: Antiretroviral therapy
     Dosage: UNK
     Route: 048
     Dates: start: 20100610
  3. LAMIVUDINE [Suspect]
     Active Substance: LAMIVUDINE
     Indication: Antiviral treatment
     Dosage: 300 MILLIGRAM, QD
     Route: 048
     Dates: start: 20100610
  4. LAMIVUDINE [Suspect]
     Active Substance: LAMIVUDINE
     Dosage: 300 MILLIGRAM, QD
     Route: 048
  5. NEVIRAPINE [Suspect]
     Active Substance: NEVIRAPINE
     Indication: HIV infection
     Dosage: 400 MILLIGRAM, QD
     Route: 048
     Dates: start: 20090101, end: 20100610
  6. NEVIRAPINE [Suspect]
     Active Substance: NEVIRAPINE
     Indication: Antiretroviral therapy
  7. VIREAD [Suspect]
     Active Substance: TENOFOVIR DISOPROXIL FUMARATE
     Indication: HIV infection
     Dosage: UNK
     Route: 048
     Dates: start: 20100610
  8. VIREAD [Suspect]
     Active Substance: TENOFOVIR DISOPROXIL FUMARATE
     Indication: Antiviral treatment
     Dosage: 300 MILLIGRAM, QD
     Route: 048
     Dates: start: 20100610
  9. VIREAD [Suspect]
     Active Substance: TENOFOVIR DISOPROXIL FUMARATE
     Indication: Antiretroviral therapy
     Dosage: 5700 MILLIGRAM
     Route: 048
  10. VIREAD [Suspect]
     Active Substance: TENOFOVIR DISOPROXIL FUMARATE
     Dosage: UNK
  11. ISENTRESS [Suspect]
     Active Substance: RALTEGRAVIR POTASSIUM
     Indication: HIV infection
     Dosage: 400 MG, BID (ALSO REPORTED AS 800 MG , QD)
     Route: 048
     Dates: start: 20100610
  12. ISENTRESS [Suspect]
     Active Substance: RALTEGRAVIR POTASSIUM
     Dosage: 800 MILLIGRAM, Q6H, 800 MG, QID
     Route: 048
     Dates: start: 20100610
  13. ISENTRESS [Suspect]
     Active Substance: RALTEGRAVIR POTASSIUM
     Dosage: 400 MILLIGRAM, Q4D (GESTATION PERIOD- 37 WEEKS )
     Dates: start: 20100610
  14. ZIDOVUDINE [Suspect]
     Active Substance: ZIDOVUDINE
     Indication: HIV infection
     Dosage: 600 MILLIGRAM, QD
     Route: 048
     Dates: start: 20090101, end: 20100610
  15. ZIDOVUDINE [Suspect]
     Active Substance: ZIDOVUDINE
     Indication: Antiviral treatment
     Dosage: 800 MILLIGRAM, QD
     Route: 048
     Dates: start: 20100610
  16. ZIDOVUDINE [Suspect]
     Active Substance: ZIDOVUDINE
     Indication: Antiretroviral therapy
     Dosage: 600 MILLIGRAM, QD
     Route: 048
     Dates: start: 20090110, end: 20100610
  17. RALTEGRAVIR [Suspect]
     Active Substance: RALTEGRAVIR
     Indication: HIV infection
     Dosage: 1 DOSAGE FORM, QD
     Route: 048
     Dates: start: 20100610
  18. RALTEGRAVIR [Suspect]
     Active Substance: RALTEGRAVIR
     Dosage: 800 MILLIGRAM, QD
     Route: 048
     Dates: start: 20100610
  19. TENOFOVIR DISOPROXIL FUMARATE [Suspect]
     Active Substance: TENOFOVIR DISOPROXIL FUMARATE
     Indication: HIV infection
     Dosage: 300 MILLIGRAM, QD
     Route: 048
     Dates: start: 20100610
  20. LOPINAVIR\RITONAVIR [Suspect]
     Active Substance: LOPINAVIR\RITONAVIR
     Indication: HIV infection
     Dosage: UNK
     Route: 048
     Dates: start: 20100610
  21. LOPINAVIR\RITONAVIR [Suspect]
     Active Substance: LOPINAVIR\RITONAVIR
     Indication: Antiviral treatment
     Dosage: UNK
     Route: 048
     Dates: start: 20100610
  22. KALETRA [Suspect]
     Active Substance: LOPINAVIR\RITONAVIR
     Indication: HIV infection
     Dosage: UNK
     Route: 048
     Dates: start: 20210610
  23. KALETRA [Suspect]
     Active Substance: LOPINAVIR\RITONAVIR
     Indication: Antiviral treatment
     Dosage: UNK, START 10-JUN-2021
     Route: 048
  24. KALETRA [Suspect]
     Active Substance: LOPINAVIR\RITONAVIR
     Dosage: UNK
     Route: 048
     Dates: start: 20100610
  25. KALETRA [Suspect]
     Active Substance: LOPINAVIR\RITONAVIR
     Dosage: UNK
  26. LOPINAVIR\RITONAVIR [Suspect]
     Active Substance: LOPINAVIR\RITONAVIR
     Indication: Antiviral treatment
     Dosage: UNK, START 10-JUN-2021
     Route: 048
     Dates: start: 20210610
  27. LAMIVUDINE [Suspect]
     Active Substance: LAMIVUDINE
     Indication: Antiviral treatment
     Dosage: 300 MILLIGRAM, QD (300 MG, QD)
     Route: 048
  28. LAMIVUDINE [Suspect]
     Active Substance: LAMIVUDINE
     Dosage: UNK
     Route: 048
     Dates: start: 20100610
  29. LAMIVUDINE [Suspect]
     Active Substance: LAMIVUDINE
     Dosage: 300 MILLIGRAM, QD (300 MG, QD)
     Route: 048
     Dates: start: 20090101, end: 20100610
  30. VIRAMUNE [Suspect]
     Active Substance: NEVIRAPINE
     Indication: Antiviral treatment
     Dosage: 400 MILLIGRAM, QD
     Route: 048
     Dates: start: 20090101, end: 20100610
  31. VIRAMUNE [Suspect]
     Active Substance: NEVIRAPINE
     Indication: Antiretroviral therapy
  32. RALTEGRAVIR [Concomitant]
     Active Substance: RALTEGRAVIR
     Indication: HIV infection
     Dosage: 1 DOSAGE FORM, QD
     Route: 048
     Dates: start: 20100610

REACTIONS (5)
  - Caesarean section [Unknown]
  - Hepatic cytolysis [Unknown]
  - Alanine aminotransferase increased [Unknown]
  - Aspartate aminotransferase increased [Unknown]
  - Maternal exposure during pregnancy [Recovered/Resolved]

NARRATIVE: CASE EVENT DATE: 20100629
